FAERS Safety Report 14410453 (Version 1)
Quarter: 2018Q1

REPORT INFORMATION
  Report Type: Spontaneous
  Country: US (occurrence: US)
  Receive Date: 20180116
  Receipt Date: 20180116
  Transmission Date: 20180509
  Serious: No
  Sender: FDA-Public Use
  Company Number: None

PATIENT
  Age: 62 Year
  Sex: Female

DRUGS (1)
  1. SENSIPAR [Suspect]
     Active Substance: CINACALCET HYDROCHLORIDE
     Indication: HYPERPARATHYROIDISM
     Route: 048
     Dates: start: 20171111

REACTIONS (4)
  - Vomiting [None]
  - Malaise [None]
  - Lethargy [None]
  - Nausea [None]

NARRATIVE: CASE EVENT DATE: 20180115
